FAERS Safety Report 7211286-2 (Version None)
Quarter: 2010Q4

REPORT INFORMATION
  Report Type: 
  Country: None (occurrence: None)
  Receive Date: 20101223
  Receipt Date: 20101210
  Transmission Date: 20110411
  Serious: Yes (Other)
  Sender: FDA-Public Use
  Company Number: 012161

PATIENT
  Age: 81 Year
  Sex: Male

DRUGS (5)
  1. PLETAL [Suspect]
     Indication: ARTERIOSCLEROSIS OBLITERANS
     Dosage: 100 MG, BID, ORAL
     Route: 048
     Dates: start: 20090404
  2. SOLETON (ZALTOPROFEN) TABLET [Concomitant]
  3. METHYCOBAL (MECOBALAMIN) [Concomitant]
  4. NORVASC [Concomitant]
  5. FASTIC (NATEGLINIDE) TABLET [Concomitant]

REACTIONS (2)
  - CEREBROVASCULAR ACCIDENT [None]
  - RENAL IMPAIRMENT [None]
